FAERS Safety Report 23827658 (Version 2)
Quarter: 2024Q2

REPORT INFORMATION
  Report Type: Report from Study
  Country: CA (occurrence: CA)
  Receive Date: 20240507
  Receipt Date: 20240612
  Transmission Date: 20240716
  Serious: Yes (Hospitalization)
  Sender: FDA-Public Use
  Company Number: CA-ABBVIE-5746481

PATIENT
  Age: 77 Year
  Sex: Male

DRUGS (1)
  1. LUPRON DEPOT [Suspect]
     Active Substance: LEUPROLIDE ACETATE
     Indication: Prostate cancer
     Route: 030
     Dates: start: 20211228

REACTIONS (2)
  - Transurethral prostatectomy [Recovering/Resolving]
  - Urinary retention [Unknown]

NARRATIVE: CASE EVENT DATE: 20230101
